FAERS Safety Report 7398831-1 (Version None)
Quarter: 2011Q2

REPORT INFORMATION
  Report Type: 
  Country: None (occurrence: None)
  Receive Date: 20110404
  Receipt Date: 20110404
  Transmission Date: 20111010
  Serious: No
  Sender: FDA-Public Use
  Company Number: None

PATIENT
  Age: 75 Year
  Sex: Female

DRUGS (1)
  1. OMNIPAQUE 140 [Suspect]
     Indication: FISTULOGRAM
     Dosage: 5ML ONCE IV
     Route: 042
     Dates: start: 20101220, end: 20101220

REACTIONS (6)
  - VOMITING [None]
  - NAUSEA [None]
  - URTICARIA [None]
  - CONTRAST MEDIA REACTION [None]
  - COUGH [None]
  - WHEEZING [None]
